FAERS Safety Report 8550015-7 (Version None)
Quarter: 2012Q3

REPORT INFORMATION
  Report Type: 
  Country: None (occurrence: None)
  Receive Date: 20120730
  Receipt Date: 20120717
  Transmission Date: 20120928
  Serious: Yes (Other)
  Sender: FDA-Public Use
  Company Number: DE-JNJFOC-20120714223

PATIENT
  Age: 79 Year
  Sex: Female

DRUGS (1)
  1. REMICADE [Suspect]
     Indication: POLYARTHRITIS
     Route: 042
     Dates: start: 20001101

REACTIONS (1)
  - SQUAMOUS CELL CARCINOMA [None]
